FAERS Safety Report 8847778 (Version 4)
Quarter: 2014Q1

REPORT INFORMATION
  Report Type: Report from Study
  Country: IT (occurrence: IT)
  Receive Date: 20121018
  Receipt Date: 20140106
  Transmission Date: 20141002
  Serious: Yes (Hospitalization, Other)
  Sender: FDA-Public Use
  Company Number: IT-CELGENEUS-083-21880-12090832

PATIENT
  Age: 62 Year
  Sex: Male
  Weight: 82 kg

DRUGS (33)
  1. REVLIMID [Suspect]
     Indication: PLASMA CELL MYELOMA
     Dosage: 25 MILLIGRAM
     Route: 048
     Dates: start: 20111130, end: 20111220
  2. REVLIMID [Suspect]
     Dosage: 15 MILLIGRAM
     Route: 048
     Dates: start: 20120403, end: 20120423
  3. REVLIMID [Suspect]
     Route: 048
     Dates: start: 20120627, end: 20120717
  4. REVLIMID [Suspect]
     Route: 048
     Dates: start: 20120801, end: 20120821
  5. CARFILZOMIB [Suspect]
     Indication: PLASMA CELL MYELOMA
     Dosage: 20 MILLIGRAM/SQ. METER
     Route: 065
     Dates: start: 20111130, end: 20111201
  6. CARFILZOMIB [Suspect]
     Dosage: 27 MILLIGRAM/SQ. METER
     Route: 065
     Dates: start: 20111206, end: 20111215
  7. CARFILZOMIB [Suspect]
     Dosage: 20 MILLIGRAM/SQ. METER
     Route: 065
     Dates: start: 20120627, end: 20120713
  8. CARFILZOMIB [Suspect]
     Dosage: 20 MILLIGRAM/SQ. METER
     Route: 065
     Dates: start: 20120801, end: 20120816
  9. DEXAMETHASONE [Suspect]
     Indication: PLASMA CELL MYELOMA
     Dosage: 40 MILLIGRAM
     Route: 065
     Dates: start: 20111130, end: 20111221
  10. DEXAMETHASONE [Suspect]
     Dosage: 40 MILLIGRAM
     Route: 065
     Dates: start: 20120627, end: 20120718
  11. DEXAMETHASONE [Suspect]
     Dosage: 40 MILLIGRAM
     Route: 065
     Dates: start: 20120801, end: 20120822
  12. THALIDOMIDE [Suspect]
     Indication: PLASMA CELL MYELOMA
     Route: 048
     Dates: start: 20110207, end: 20110324
  13. ARANESP [Concomitant]
     Indication: ANAEMIA
     Dosage: 150 MICROGRAM
     Route: 058
     Dates: start: 20120124
  14. BETADIN [Concomitant]
     Indication: PHLEBITIS
     Dosage: 120 GRAM
     Route: 061
     Dates: start: 20120627, end: 20120808
  15. CIPROXIN [Concomitant]
     Indication: ANTIBIOTIC PROPHYLAXIS
     Dosage: 250 MILLIGRAM
     Route: 048
     Dates: start: 20120726
  16. CIPROXIN [Concomitant]
     Indication: PNEUMONIA
     Dosage: 1000 MILLIGRAM
     Route: 048
     Dates: start: 20120928
  17. LANSOPRAZOLE [Concomitant]
     Indication: PRODUCT USED FOR UNKNOWN INDICATION
     Dosage: 15 MILLIGRAM
     Route: 048
     Dates: start: 20111128
  18. REPARIL [Concomitant]
     Indication: PHLEBITIS
     Dosage: 160 GRAM
     Route: 061
     Dates: start: 20120627, end: 20120808
  19. VALACICLOVIR [Concomitant]
     Indication: ANTIVIRAL PROPHYLAXIS
     Dosage: 500 MILLIGRAM
     Route: 048
     Dates: start: 20111128
  20. MYELOSTIM [Concomitant]
     Indication: NEUTROPENIA
     Dosage: MUI
     Route: 058
     Dates: start: 20120801, end: 20120815
  21. MYELOSTIM [Concomitant]
     Dosage: MUI
     Route: 058
     Dates: start: 20120816, end: 20120818
  22. MYELOSTIM [Concomitant]
     Dosage: 33.6 IU (INTERNATIONAL UNIT)
     Route: 058
     Dates: start: 20120910, end: 20120921
  23. MYELOSTIM [Concomitant]
     Dosage: 33.6 IU (INTERNATIONAL UNIT)
     Route: 058
     Dates: start: 20120926, end: 20120928
  24. MYELOSTIM [Concomitant]
     Dosage: 16.8
     Route: 058
     Dates: start: 20120930, end: 20121002
  25. CLEXANE [Concomitant]
     Indication: ANTICOAGULANT THERAPY
     Dosage: 4000 IU (INTERNATIONAL UNIT)
     Route: 058
     Dates: start: 20120713
  26. CLEXANE [Concomitant]
     Indication: ANTIPLATELET THERAPY
  27. URBASON [Concomitant]
     Indication: PROPHYLAXIS
     Dosage: 20 MILLIGRAM
     Route: 041
     Dates: start: 20120913, end: 20120927
  28. RANIDIL [Concomitant]
     Indication: PROPHYLAXIS
     Dosage: 100 MILLIGRAM
     Route: 041
     Dates: start: 20120913, end: 20120927
  29. LOSEC [Concomitant]
     Indication: PROPHYLAXIS
     Dosage: 20 MILLIGRAM
     Route: 048
     Dates: start: 20120928
  30. LASIX [Concomitant]
     Indication: PROPHYLAXIS
     Dosage: 500 MILLIGRAM
     Route: 041
     Dates: start: 20120912, end: 20120927
  31. LASIX [Concomitant]
     Dosage: 25 MILLIGRAM
     Route: 048
     Dates: start: 20120928
  32. DELTACORTENE [Concomitant]
     Indication: PROPHYLAXIS
     Dosage: 25 MILLIGRAM
     Route: 048
     Dates: start: 20120928
  33. ZYLORIC [Concomitant]
     Indication: HYPERURICAEMIA
     Dosage: 300 MILLIGRAM
     Route: 048
     Dates: start: 20120915, end: 20120927

REACTIONS (1)
  - Acute myeloid leukaemia [Not Recovered/Not Resolved]
